FAERS Safety Report 5062869-X (Version None)
Quarter: 2006Q3

REPORT INFORMATION
  Report Type: 
  Country: None (occurrence: None)
  Receive Date: 20060724
  Receipt Date: 20060710
  Transmission Date: 20061208
  Serious: Yes (Life-Threatening)
  Sender: FDA-Public Use
  Company Number: B0431532A

PATIENT
  Age: 48 Year
  Sex: Male

DRUGS (3)
  1. ESKALITH [Suspect]
     Indication: BIPOLAR I DISORDER
     Dates: start: 19870101
  2. LAMICTAL [Suspect]
     Indication: AFFECTIVE DISORDER
  3. PAXIL [Suspect]
     Indication: AFFECTIVE DISORDER

REACTIONS (6)
  - BUNDLE BRANCH BLOCK RIGHT [None]
  - CONGESTIVE CARDIOMYOPATHY [None]
  - DECREASED ACTIVITY [None]
  - DEPRESSIVE SYMPTOM [None]
  - ELECTROCARDIOGRAM T WAVE INVERSION [None]
  - MANIA [None]
